FAERS Safety Report 6400173-5 (Version None)
Quarter: 2009Q4

REPORT INFORMATION
  Report Type: 
  Country: None (occurrence: None)
  Receive Date: 20091014
  Receipt Date: 20091008
  Transmission Date: 20100525
  Serious: No
  Sender: FDA-Public Use
  Company Number: US-JNJFOC-20091003884

PATIENT
  Sex: Female
  Weight: 56.7 kg

DRUGS (5)
  1. DURAGESIC-100 [Suspect]
     Indication: NERVE INJURY
     Route: 062
     Dates: start: 20091002
  2. LORA TAB [Concomitant]
     Indication: PAIN
     Dosage: 10/35
     Route: 048
  3. BACLOFEN [Concomitant]
     Indication: PAIN
     Dosage: AS NEEDED
     Route: 048
  4. LUNESTA [Concomitant]
     Indication: SLEEP DISORDER
     Dosage: AS NEEDED
     Route: 048
  5. LISINOPRIL [Concomitant]
     Indication: HYPERTENSION
     Route: 048

REACTIONS (2)
  - INADEQUATE ANALGESIA [None]
  - INAPPROPRIATE SCHEDULE OF DRUG ADMINISTRATION [None]
